FAERS Safety Report 4531059-9 (Version None)
Quarter: 2004Q4

REPORT INFORMATION
  Report Type: 
  Country: None (occurrence: None)
  Receive Date: 20041206
  Receipt Date: 20041022
  Transmission Date: 20050328
  Serious: Yes (Death, Other)
  Sender: FDA-Public Use
  Company Number: USA041082607

PATIENT
  Age: 39 Year
  Sex: Female

DRUGS (1)
  1. CYMBALATA (DULOXETINE HYDROCHLORIDE) [Suspect]

REACTIONS (1)
  - COMPLETED SUICIDE [None]
